FAERS Safety Report 9120741 (Version 1)
Quarter: 2013Q1

REPORT INFORMATION
  Report Type: Spontaneous
  Country: US (occurrence: US)
  Receive Date: 20130226
  Receipt Date: 20130226
  Transmission Date: 20140127
  Serious: Yes (Other)
  Sender: FDA-Public Use
  Company Number: US-PFIZER INC-2013068084

PATIENT
  Age: 69 Year
  Sex: Female
  Weight: 69.39 kg

DRUGS (4)
  1. GABAPENTIN [Suspect]
     Indication: PAIN
     Dosage: 100 MG, DAILY
     Dates: start: 20130220, end: 20130221
  2. GABAPENTIN [Suspect]
     Indication: NERVE INJURY
  3. FIORICET [Concomitant]
     Indication: MIGRAINE
     Dosage: UNK
  4. SYNTHROID [Concomitant]
     Indication: HYPERTHYROIDISM
     Dosage: 75 UG, 1X/DAY

REACTIONS (7)
  - Blood pressure increased [Recovering/Resolving]
  - Listless [Recovering/Resolving]
  - Fatigue [Recovering/Resolving]
  - Malaise [Recovering/Resolving]
  - Pain [Unknown]
  - Drug hypersensitivity [Unknown]
  - Intentional drug misuse [Recovered/Resolved]
